FAERS Safety Report 6102330-4 (Version None)
Quarter: 2009Q1

REPORT INFORMATION
  Report Type: 
  Country: None (occurrence: None)
  Receive Date: 20090227
  Receipt Date: 20080131
  Transmission Date: 20090719
  Serious: Yes (Other)
  Sender: FDA-Public Use
  Company Number: 544716

PATIENT
  Sex: Female
  Weight: 99.8 kg

DRUGS (6)
  1. ACCUTANE [Suspect]
     Indication: ACNE
     Dosage: 40 MG
     Dates: start: 19980106, end: 19990308
  2. ACCUTANE [Suspect]
     Indication: ACNE CYSTIC
     Dosage: 40 MG
     Dates: start: 19980106, end: 19990308
  3. EFFEXOR [Concomitant]
  4. ORTHO NOVUM (*ETHINYLESTRADIOL/*MESTRANOL/NORETHISTERONE) [Concomitant]
  5. ZOLOFT [Concomitant]
  6. PREDNISONE TAB [Concomitant]

REACTIONS (25)
  - ANXIETY [None]
  - ARTHRALGIA [None]
  - COLITIS ULCERATIVE [None]
  - CROHN'S DISEASE [None]
  - DEPRESSION [None]
  - DRY SKIN [None]
  - ECZEMA [None]
  - ERYTHEMA [None]
  - EYE DISORDER [None]
  - EYE INFECTION [None]
  - HEADACHE [None]
  - IMPAIRED HEALING [None]
  - INFLAMMATORY BOWEL DISEASE [None]
  - INTERVERTEBRAL DISC PROTRUSION [None]
  - IRRITABILITY [None]
  - IRRITABLE BOWEL SYNDROME [None]
  - JOINT STIFFNESS [None]
  - LARYNGITIS [None]
  - LIP DRY [None]
  - NASAL DRYNESS [None]
  - PHOTOSENSITIVITY REACTION [None]
  - PRURITUS [None]
  - RASH [None]
  - RECTAL HAEMORRHAGE [None]
  - VISION BLURRED [None]
